FAERS Safety Report 9890602 (Version 1)
Quarter: 2014Q1

REPORT INFORMATION
  Report Type: Spontaneous
  Country: DE (occurrence: DE)
  Receive Date: 20140212
  Receipt Date: 20140212
  Transmission Date: 20141002
  Serious: Yes (Other)
  Sender: FDA-Public Use
  Company Number: DE-BAYER-2014-020817

PATIENT
  Sex: Female

DRUGS (2)
  1. ASPIRIN PROTECT 100 [Suspect]
     Dosage: 100 MG, QD
  2. CORTISONE [Concomitant]
     Dosage: UNK
     Dates: start: 20131210

REACTIONS (1)
  - Myocardial infarction [None]
